FAERS Safety Report 9946293 (Version 2)
Quarter: 2014Q1

REPORT INFORMATION
  Report Type: Report from Study
  Country: AU (occurrence: AU)
  Receive Date: 20140303
  Receipt Date: 20140312
  Transmission Date: 20141002
  Serious: Yes (Death)
  Sender: FDA-Public Use
  Company Number: PHHY2014AU025177

PATIENT
  Age: 54 Year
  Sex: Male

DRUGS (1)
  1. CLOZARIL [Suspect]
     Dosage: 350 MG, UNK
     Dates: start: 19990901

REACTIONS (4)
  - Death [Fatal]
  - Red blood cell count decreased [Recovered/Resolved]
  - Eosinophil count decreased [Unknown]
  - Platelet count decreased [Unknown]
